FAERS Safety Report 14029923 (Version 1)
Quarter: 2017Q4

REPORT INFORMATION
  Report Type: Spontaneous
  Country: US (occurrence: US)
  Receive Date: 20171002
  Receipt Date: 20171002
  Transmission Date: 20180321
  Serious: No
  Sender: FDA-Public Use
  Company Number: US-PFIZER INC-2017421153

PATIENT
  Sex: Male

DRUGS (1)
  1. BLEOMYCIN SULFATE [Suspect]
     Active Substance: BLEOMYCIN SULFATE
     Dosage: UNK

REACTIONS (2)
  - Skin discolouration [Unknown]
  - Nodule [Unknown]
